FAERS Safety Report 17015090 (Version 1)
Quarter: 2019Q4

REPORT INFORMATION
  Report Type: Spontaneous
  Country: FR (occurrence: FR)
  Receive Date: 20191111
  Receipt Date: 20191111
  Transmission Date: 20200122
  Serious: Yes (Other)
  Sender: FDA-Public Use
  Company Number: FR-ACCORD-160405

PATIENT
  Age: 76 Year
  Sex: Male

DRUGS (2)
  1. COLCHICINE OPOCALCIUM [Suspect]
     Active Substance: COLCHICINE
     Indication: GOUT
     Dosage: UNSPECIFIED
     Route: 048
     Dates: start: 20190918
  2. ALLOPURINOL. [Suspect]
     Active Substance: ALLOPURINOL
     Indication: GOUT
     Dosage: UNSPECIFIED
     Route: 048
     Dates: start: 20190917, end: 20190924

REACTIONS (3)
  - Cholestasis [Recovered/Resolved]
  - Hypertransaminasaemia [Recovered/Resolved]
  - Hepatitis acute [Recovered/Resolved]

NARRATIVE: CASE EVENT DATE: 20190924
